FAERS Safety Report 4502436-7 (Version None)
Quarter: 2004Q4

REPORT INFORMATION
  Report Type: 
  Country: None (occurrence: None)
  Receive Date: 20041112
  Receipt Date: 20041026
  Transmission Date: 20050328
  Serious: Yes (Hospitalization)
  Sender: FDA-Public Use
  Company Number: 9189

PATIENT
  Age: 55 Year
  Sex: Female

DRUGS (4)
  1. METHOTREXATE [Suspect]
     Indication: PSORIATIC ARTHROPATHY
     Dates: start: 20001001
  2. ETANERCEPT [Suspect]
     Indication: PSORIATIC ARTHROPATHY
     Dosage: 25 MG 2/WK
     Route: 058
     Dates: start: 20040701, end: 20041001
  3. FOLIC ACID [Concomitant]
  4. CELECOXIB [Concomitant]

REACTIONS (1)
  - OVARIAN CANCER [None]
